FAERS Safety Report 23789685 (Version 1)
Quarter: 2024Q2

REPORT INFORMATION
  Report Type: Spontaneous
  Country: PL (occurrence: PL)
  Receive Date: 20240426
  Receipt Date: 20240426
  Transmission Date: 20240716
  Serious: Yes (Hospitalization, Other)
  Sender: FDA-Public Use
  Company Number: PL-AUROBINDO-AUR-APL-2023-062644

PATIENT
  Age: 27 Year
  Sex: Male

DRUGS (17)
  1. METHYLPREDNISOLONE [Suspect]
     Active Substance: METHYLPREDNISOLONE
     Indication: Overlap syndrome
     Dosage: 125 MILLIGRAM (5 INFUSIONS)
     Route: 065
  2. METHYLPREDNISOLONE [Suspect]
     Active Substance: METHYLPREDNISOLONE
     Dosage: 6 PULSES OF METHYLPREDNISOLONE AT 500 MG ROUTE OF ADMIN (FREE TEXT): INTRAVENOUS (NOT OTHERWISE SPEC
     Route: 042
  3. BISOPROLOL [Concomitant]
     Active Substance: BISOPROLOL\BISOPROLOL FUMARATE
     Indication: Product used for unknown indication
     Dosage: UNK
     Route: 065
  4. PREDNISOLONE [Concomitant]
     Active Substance: PREDNISOLONE
     Indication: Dermatomyositis
     Dosage: 20.000MG QD
     Route: 065
  5. PREDNISOLONE [Concomitant]
     Active Substance: PREDNISOLONE
     Indication: Sjogren^s syndrome
     Dosage: 40 MG, QD
     Route: 048
  6. PREDNISOLONE [Concomitant]
     Active Substance: PREDNISOLONE
     Indication: Product used for unknown indication
     Dosage: 60 MG, QD
     Route: 048
  7. PREDNISOLONE [Concomitant]
     Active Substance: PREDNISOLONE
     Indication: Systemic lupus erythematosus
     Dosage: SLOW REDUCTION
     Route: 065
  8. PREDNISOLONE [Concomitant]
     Active Substance: PREDNISOLONE
     Indication: Overlap syndrome
  9. PREDNISONE [Concomitant]
     Active Substance: PREDNISONE
     Indication: Systemic lupus erythematosus
     Dosage: 20 MG, QD
     Route: 065
  10. PREDNISONE [Concomitant]
     Active Substance: PREDNISONE
     Indication: Sjogren^s syndrome
     Dosage: REDUCED TO 40 MG,QD
     Route: 065
  11. PREDNISONE [Concomitant]
     Active Substance: PREDNISONE
     Indication: Dermatomyositis
     Dosage: 60 MG, QD
     Route: 065
  12. PREDNISONE [Concomitant]
     Active Substance: PREDNISONE
     Indication: Overlap syndrome
     Dosage: 60 MG, QD
     Route: 048
  13. VITAMIN B12 [Concomitant]
     Active Substance: CYANOCOBALAMIN
     Indication: Vitamin B12 deficiency
     Dosage: 3 DOSAGE FORM (1000J EACH)
     Route: 065
  14. CYCLOSPORINE [Interacting]
     Active Substance: CYCLOSPORINE
     Indication: Systemic lupus erythematosus
     Dosage: 200 MG, QD
     Route: 048
  15. CYCLOSPORINE [Interacting]
     Active Substance: CYCLOSPORINE
     Indication: Overlap syndrome
     Dosage: 250 MG, QD
     Route: 048
  16. MYCOPHENOLATE MOFETIL [Interacting]
     Active Substance: MYCOPHENOLATE MOFETIL
     Indication: Product used for unknown indication
     Dosage: UNK
     Route: 065
  17. SERTRALINE [Interacting]
     Active Substance: SERTRALINE HYDROCHLORIDE
     Indication: Product used for unknown indication
     Dosage: UNK
     Route: 065

REACTIONS (13)
  - Transaminases increased [Unknown]
  - Therapeutic product effect incomplete [Unknown]
  - Drug interaction [Unknown]
  - Pyrexia [Unknown]
  - Night sweats [Unknown]
  - Drug intolerance [Unknown]
  - Off label use [Unknown]
  - Drug level below therapeutic [Unknown]
  - Skin lesion [Unknown]
  - Medication error [Unknown]
  - Dry mouth [Unknown]
  - Muscular weakness [Unknown]
  - Device effect incomplete [Unknown]

NARRATIVE: CASE EVENT DATE: 20200925
